FAERS Safety Report 21199953 (Version 40)
Quarter: 2025Q2

REPORT INFORMATION
  Report Type: Report from Study
  Country: US (occurrence: US)
  Receive Date: 20220811
  Receipt Date: 20250626
  Transmission Date: 20250716
  Serious: Yes (Other)
  Sender: TAKEDA
  Company Number: US-PAREXEL-2021-KAM-US003509

PATIENT
  Age: 60 Year
  Sex: Female
  Weight: 78 kg

DRUGS (41)
  1. GLASSIA [Suspect]
     Active Substance: .ALPHA.1-PROTEINASE INHIBITOR HUMAN
     Indication: Alpha-1 antitrypsin deficiency
     Dosage: 60 MILLIGRAM/KILOGRAM, 1/WEEK
  2. GLASSIA [Suspect]
     Active Substance: .ALPHA.1-PROTEINASE INHIBITOR HUMAN
  3. MORPHINE [Suspect]
     Active Substance: MORPHINE
     Indication: Product used for unknown indication
  4. EPINEPHRINE [Concomitant]
     Active Substance: EPINEPHRINE
  5. MELOXICAM [Concomitant]
     Active Substance: MELOXICAM
  6. LIDOCAINE [Concomitant]
     Active Substance: LIDOCAINE
  7. NARCAN [Concomitant]
     Active Substance: NALOXONE HYDROCHLORIDE
  8. VOLTAREN ARTHRITIS PAIN [Concomitant]
     Active Substance: DICLOFENAC SODIUM
  9. HEPARIN [Concomitant]
     Active Substance: HEPARIN SODIUM
  10. SODIUM CHLORIDE [Concomitant]
     Active Substance: SODIUM CHLORIDE
  11. ALBUTEROL SULFATE [Concomitant]
     Active Substance: ALBUTEROL SULFATE
  12. FLONASE ALLERGY RELIEF [Concomitant]
     Active Substance: FLUTICASONE PROPIONATE
  13. DICLOFENAC SODIUM [Concomitant]
     Active Substance: DICLOFENAC SODIUM
  14. TRELEGY ELLIPTA [Concomitant]
     Active Substance: FLUTICASONE FUROATE\UMECLIDINIUM BROMIDE\VILANTEROL TRIFENATATE
  15. BELBUCA [Concomitant]
     Active Substance: BUPRENORPHINE HYDROCHLORIDE
  16. ALBUTEROL SULFATE [Concomitant]
     Active Substance: ALBUTEROL SULFATE
  17. XANAX [Concomitant]
     Active Substance: ALPRAZOLAM
  18. CELEBREX [Concomitant]
     Active Substance: CELECOXIB
  19. BIOFREEZE [Concomitant]
     Active Substance: MENTHOL
  20. DALIRESP [Concomitant]
     Active Substance: ROFLUMILAST
  21. DIFLUCAN [Concomitant]
     Active Substance: FLUCONAZOLE
  22. Afluria quad [Concomitant]
  23. PREDNISONE [Concomitant]
     Active Substance: PREDNISONE
  24. MORPHINE SULFATE [Concomitant]
     Active Substance: MORPHINE SULFATE
  25. DIPHENHYDRAMINE [Concomitant]
     Active Substance: DIPHENHYDRAMINE
  26. IBUPROFEN [Concomitant]
     Active Substance: IBUPROFEN
  27. CYCLOBENZAPRINE HYDROCHLORIDE [Concomitant]
     Active Substance: CYCLOBENZAPRINE HYDROCHLORIDE
  28. SPIRIVA RESPIMAT [Concomitant]
     Active Substance: TIOTROPIUM BROMIDE
  29. BREO ELLIPTA [Concomitant]
     Active Substance: FLUTICASONE FUROATE\VILANTEROL TRIFENATATE
  30. MEDROL [Concomitant]
     Active Substance: METHYLPREDNISOLONE
  31. DIPHENHYDRAMINE HYDROCHLORIDE [Concomitant]
     Active Substance: DIPHENHYDRAMINE HYDROCHLORIDE
  32. OXYCODONE AND ACETAMINOPHEN [Concomitant]
     Active Substance: ACETAMINOPHEN\OXYCODONE HYDROCHLORIDE
  33. PERCOCET [Concomitant]
     Active Substance: ACETAMINOPHEN\OXYCODONE HYDROCHLORIDE
  34. AMBIEN [Concomitant]
     Active Substance: ZOLPIDEM TARTRATE
  35. MECLIZINE [Concomitant]
     Active Substance: MECLIZINE HYDROCHLORIDE
  36. VENTOLIN [Concomitant]
     Active Substance: ALBUTEROL SULFATE
  37. TIZANIDINE HYDROCHLORIDE [Concomitant]
     Active Substance: TIZANIDINE HYDROCHLORIDE
  38. TRAMADOL HCL [Concomitant]
     Active Substance: TRAMADOL HYDROCHLORIDE
  39. Medrolin [Concomitant]
  40. BUPRENORPHINE [Concomitant]
     Active Substance: BUPRENORPHINE
  41. PREGABALIN [Concomitant]
     Active Substance: PREGABALIN

REACTIONS (45)
  - Rib fracture [Unknown]
  - Pneumonia [Unknown]
  - Pneumonia bacterial [Unknown]
  - Rheumatoid arthritis [Unknown]
  - Ligament sprain [Unknown]
  - Perineal swelling [Unknown]
  - Arthralgia [Unknown]
  - Neck pain [Unknown]
  - Breath sounds abnormal [Unknown]
  - Fall [Unknown]
  - Contusion [Unknown]
  - Laryngitis [Unknown]
  - Seasonal allergy [Unknown]
  - Wheezing [Unknown]
  - Gastroenteritis viral [Recovering/Resolving]
  - Paranasal sinus discomfort [Unknown]
  - Dyspnoea exertional [Unknown]
  - Pyrexia [Recovering/Resolving]
  - Sputum discoloured [Unknown]
  - Rhonchi [Unknown]
  - Illness [Unknown]
  - Swelling [Unknown]
  - Pain [Unknown]
  - Gait disturbance [Unknown]
  - Productive cough [Unknown]
  - Multiple allergies [Unknown]
  - Oral candidiasis [Unknown]
  - Oropharyngeal candidiasis [Unknown]
  - Constipation [Unknown]
  - Product dose omission issue [Unknown]
  - Influenza [Unknown]
  - Musculoskeletal chest pain [Unknown]
  - Muscle strain [Unknown]
  - Respiratory symptom [Unknown]
  - Diarrhoea [Unknown]
  - Somnolence [Unknown]
  - Bronchitis [Unknown]
  - Back pain [Unknown]
  - Upper respiratory tract infection [Unknown]
  - Fatigue [Unknown]
  - Dizziness [Unknown]
  - Dyspnoea [Unknown]
  - Cough [Not Recovered/Not Resolved]
  - Nausea [Unknown]
  - Headache [Unknown]

NARRATIVE: CASE EVENT DATE: 20230404
